FAERS Safety Report 21892762 (Version 4)
Quarter: 2023Q1

REPORT INFORMATION
  Report Type: Spontaneous
  Country: DE (occurrence: DE)
  Receive Date: 20230120
  Receipt Date: 20230227
  Transmission Date: 20230417
  Serious: Yes (Other)
  Sender: FDA-Public Use
  Company Number: None

PATIENT

DRUGS (16)
  1. TAFASITAMAB [Suspect]
     Active Substance: TAFASITAMAB
     Indication: Diffuse large B-cell lymphoma
     Dosage: TAFASITAMAB WITH LENALIDOMID
     Route: 065
     Dates: start: 202211, end: 202212
  2. LENALIDOMIDE [Suspect]
     Active Substance: LENALIDOMIDE
     Indication: Diffuse large B-cell lymphoma
     Dosage: TAFASITAMAB WITH LENALIDOMID
     Route: 065
     Dates: start: 202211, end: 202212
  3. RITUXIMAB [Suspect]
     Active Substance: RITUXIMAB
     Indication: Diffuse large B-cell lymphoma
     Dosage: R-DHAP
     Route: 065
     Dates: start: 202208, end: 202209
  4. RITUXIMAB [Suspect]
     Active Substance: RITUXIMAB
     Dosage: R-CHOP
     Route: 065
     Dates: start: 202205, end: 202207
  5. RITUXIMAB [Suspect]
     Active Substance: RITUXIMAB
     Dosage: POLATUZUMAB, BENDAMUSTIN AND RITUXIMAB
     Route: 065
     Dates: start: 202210, end: 202211
  6. CYCLOPHOSPHAMIDE [Suspect]
     Active Substance: CYCLOPHOSPHAMIDE
     Indication: Diffuse large B-cell lymphoma
     Dosage: R-CHOP
     Route: 065
     Dates: start: 202205, end: 202207
  7. DOXORUBICIN [Suspect]
     Active Substance: DOXORUBICIN
     Indication: Diffuse large B-cell lymphoma
     Dosage: R-CHOP
     Route: 065
     Dates: start: 202205, end: 202207
  8. VINCRISTINE [Suspect]
     Active Substance: VINCRISTINE
     Indication: Diffuse large B-cell lymphoma
     Dosage: R-CHOP
     Route: 065
     Dates: start: 202205, end: 202207
  9. CISPLATIN [Suspect]
     Active Substance: CISPLATIN
     Indication: Diffuse large B-cell lymphoma
     Dosage: R-DHAP
     Route: 065
     Dates: start: 202208, end: 202209
  10. BENDAMUSTINE [Suspect]
     Active Substance: BENDAMUSTINE
     Indication: Follicular lymphoma
     Dosage: WITH OBINUTUZUMAB
     Route: 065
     Dates: start: 20211001, end: 20220201
  11. BENDAMUSTINE [Suspect]
     Active Substance: BENDAMUSTINE
     Dosage: POLATUZUMAB, BENDAMUSTIN AND RITUXIMAB
     Route: 065
     Dates: start: 202210, end: 202211
  12. POLATUZUMAB VEDOTIN [Suspect]
     Active Substance: POLATUZUMAB VEDOTIN
     Indication: Diffuse large B-cell lymphoma
     Dosage: POLATUZUMAB, BENDAMUSTIN AND RITUXIMAB
     Route: 065
     Dates: start: 202210, end: 202211
  13. OBINUTUZUMAB [Suspect]
     Active Substance: OBINUTUZUMAB
     Indication: Follicular lymphoma
     Dosage: WITH BENDAMUSTIN
     Route: 042
     Dates: start: 20211001, end: 20220201
  14. PREDNISONE [Suspect]
     Active Substance: PREDNISONE
     Indication: Diffuse large B-cell lymphoma
     Dosage: R-CHOP
     Route: 065
     Dates: start: 202205, end: 202207
  15. CYTARABINE [Suspect]
     Active Substance: CYTARABINE
     Indication: Diffuse large B-cell lymphoma
     Dosage: R-DHAP
     Route: 065
     Dates: start: 202208, end: 202209
  16. DEXAMETHASONE [Suspect]
     Active Substance: DEXAMETHASONE
     Indication: Diffuse large B-cell lymphoma
     Dosage: R-DHAP
     Route: 065
     Dates: start: 202208, end: 202209

REACTIONS (8)
  - Lymphoma [Not Recovered/Not Resolved]
  - Hypercalcaemia [Not Recovered/Not Resolved]
  - Disturbance in attention [Not Recovered/Not Resolved]
  - Hypotension [Not Recovered/Not Resolved]
  - Alanine aminotransferase increased [Not Recovered/Not Resolved]
  - Aspartate aminotransferase increased [Not Recovered/Not Resolved]
  - Haemorrhage [Not Recovered/Not Resolved]
  - Sepsis [Not Recovered/Not Resolved]

NARRATIVE: CASE EVENT DATE: 20221013
